FAERS Safety Report 7212965-3 (Version None)
Quarter: 2011Q1

REPORT INFORMATION
  Report Type: 
  Country: None (occurrence: None)
  Receive Date: 20110106
  Receipt Date: 20101216
  Transmission Date: 20110831
  Serious: Yes (Death, Congenital Anomaly)
  Sender: FDA-Public Use
  Company Number: A0748062A

PATIENT
  Sex: Male
  Weight: 3.5 kg

DRUGS (3)
  1. PAXIL CR [Suspect]
     Indication: DEPRESSION
     Dosage: 25MG UNKNOWN
     Dates: start: 20050101, end: 20060101
  2. ROBITUSSIN [Concomitant]
  3. PRENATAL VITAMINS [Concomitant]

REACTIONS (16)
  - DEATH [None]
  - ADRENAL INSUFFICIENCY [None]
  - GASTROINTESTINAL NECROSIS [None]
  - DISSEMINATED INTRAVASCULAR COAGULATION [None]
  - PATENT DUCTUS ARTERIOSUS [None]
  - RESPIRATORY FAILURE [None]
  - SEPSIS [None]
  - NEONATAL ASPIRATION [None]
  - PNEUMONIA [None]
  - PULMONARY HYPERTENSION [None]
  - NECROTISING COLITIS [None]
  - DRUG EXPOSURE DURING PREGNANCY [None]
  - GASTROSCHISIS [None]
  - PERSISTENT FOETAL CIRCULATION [None]
  - THROMBOCYTOPENIA [None]
  - ATRIAL SEPTAL DEFECT [None]
